FAERS Safety Report 4377908-9 (Version None)
Quarter: 2004Q2

REPORT INFORMATION
  Report Type: 
  Country: None (occurrence: None)
  Receive Date: 20040616
  Receipt Date: 20030805
  Transmission Date: 20050107
  Serious: Yes (Other)
  Sender: FDA-Public Use
  Company Number: PHFR2003GB03145

PATIENT
  Age: 30 Year
  Sex: Male

DRUGS (5)
  1. OMEPRAZOLE [Concomitant]
     Indication: PEPTIC ULCER
     Dosage: 20MG
     Route: 048
  2. VALPROATE SODIUM [Concomitant]
     Indication: SCHIZOAFFECTIVE DISORDER
     Dosage: 1200MG
     Route: 048
     Dates: start: 19990101
  3. HYOSCINE HYDROBROMIDE [Concomitant]
     Indication: SALIVARY HYPERSECRETION
     Dosage: 300MG/DAY
     Route: 048
     Dates: start: 19990101
  4. ZOPICLONE [Concomitant]
     Indication: INSOMNIA
     Dosage: 7.5MG/DAY
     Route: 048
     Dates: start: 19990101
  5. CLOZARIL [Suspect]
     Indication: SCHIZOPHRENIA
     Dosage: 200MG NOCTE
     Route: 048
     Dates: start: 19990120

REACTIONS (6)
  - ANXIETY [None]
  - BLOOD ALKALINE PHOSPHATASE INCREASED [None]
  - C-REACTIVE PROTEIN INCREASED [None]
  - GAMMA-GLUTAMYLTRANSFERASE INCREASED [None]
  - LIVER FUNCTION TEST ABNORMAL [None]
  - VOMITING [None]
